FAERS Safety Report 7398472-6 (Version None)
Quarter: 2011Q2

REPORT INFORMATION
  Report Type: 
  Country: None (occurrence: None)
  Receive Date: 20110407
  Receipt Date: 20110330
  Transmission Date: 20111010
  Serious: Yes (Hospitalization)
  Sender: FDA-Public Use
  Company Number: US-BIOGENIDEC-2011BI009205

PATIENT
  Age: 53 Year
  Sex: Male
  Weight: 79 kg

DRUGS (3)
  1. AVONEX [Suspect]
     Indication: MULTIPLE SCLEROSIS
     Route: 030
     Dates: start: 20030405
  2. AVONEX [Suspect]
     Route: 030
     Dates: end: 20061101
  3. LOTREL [Concomitant]
     Indication: HYPERTENSION

REACTIONS (1)
  - ABSCESS LIMB [None]
